FAERS Safety Report 5805631-X (Version None)
Quarter: 2008Q3

REPORT INFORMATION
  Report Type: 
  Country: None (occurrence: None)
  Receive Date: 20080710
  Receipt Date: 20080515
  Transmission Date: 20090109
  Serious: No
  Sender: FDA-Public Use
  Company Number: A0699755A

PATIENT
  Age: 61 Year
  Sex: Female

DRUGS (13)
  1. TYKERB [Suspect]
     Indication: BREAST CANCER
     Dosage: 1250MG PER DAY
     Route: 048
     Dates: start: 20071214
  2. XELODA [Suspect]
     Dosage: 1500MG TWICE PER DAY
     Dates: start: 20071212
  3. PROGRAF [Concomitant]
  4. DEXTROL [Concomitant]
  5. BACTRIM [Concomitant]
  6. WARFARIN SODIUM [Concomitant]
  7. OSCAL D [Concomitant]
  8. MAGNESIUM [Concomitant]
  9. ZANTAC [Concomitant]
  10. LISINOPRIL [Concomitant]
  11. OXYCODONE HCL [Concomitant]
  12. COMPAZINE [Concomitant]
  13. IMITREX [Concomitant]

REACTIONS (5)
  - ANOREXIA [None]
  - ASTHENIA [None]
  - DIARRHOEA [None]
  - HEADACHE [None]
  - PALMAR-PLANTAR ERYTHRODYSAESTHESIA SYNDROME [None]
